FAERS Safety Report 6604901-5 (Version None)
Quarter: 2010Q1

REPORT INFORMATION
  Report Type: 
  Country: None (occurrence: None)
  Receive Date: 20100226
  Receipt Date: 20100219
  Transmission Date: 20100710
  Serious: Yes (Hospitalization)
  Sender: FDA-Public Use
  Company Number: B0634864A

PATIENT
  Age: 35 Year
  Sex: Male

DRUGS (1)
  1. ZINNAT [Suspect]
     Indication: SINUSITIS
     Dosage: 250MG TWICE PER DAY
     Route: 048
     Dates: start: 20091214, end: 20091215

REACTIONS (6)
  - DERMATITIS EXFOLIATIVE [None]
  - EOSINOPHILIA [None]
  - IMMUNE SYSTEM DISORDER [None]
  - RASH MACULO-PAPULAR [None]
  - SKIN EXFOLIATION [None]
  - TOXIC SKIN ERUPTION [None]
